FAERS Safety Report 6517638-8 (Version None)
Quarter: 2009Q4

REPORT INFORMATION
  Report Type: 
  Country: None (occurrence: None)
  Receive Date: 20091224
  Receipt Date: 20091218
  Transmission Date: 20100525
  Serious: Yes (Life-Threatening, Hospitalization, Other)
  Sender: FDA-Public Use
  Company Number: PHHO2009FR15724

PATIENT
  Sex: Male

DRUGS (2)
  1. STI571/CGP57148B T35717+TAB [Suspect]
     Indication: ACUTE LYMPHOCYTIC LEUKAEMIA
     Dosage: UNK
     Route: 048
     Dates: start: 20091203
  2. CHEMOTHERAPEUTICS NOS [Suspect]

REACTIONS (7)
  - ACUTE RESPIRATORY DISTRESS SYNDROME [None]
  - APLASIA [None]
  - CARDIOPULMONARY FAILURE [None]
  - FLUID RETENTION [None]
  - LOWER RESPIRATORY TRACT INFECTION [None]
  - LUNG DISORDER [None]
  - SODIUM RETENTION [None]
